FAERS Safety Report 5062058-9 (Version None)
Quarter: 2006Q3

REPORT INFORMATION
  Report Type: 
  Country: None (occurrence: None)
  Receive Date: 20060703
  Receipt Date: 20050930
  Transmission Date: 20061208
  Serious: No
  Sender: FDA-Public Use
  Company Number: 2005S1009831

PATIENT
  Age: 21 Year
  Sex: Female

DRUGS (6)
  1. CLOZAPINE [Suspect]
     Indication: SCHIZOPHRENIA
     Dosage: 400 MG;HS;PO
     Route: 048
     Dates: start: 20050821, end: 20050923
  2. HALOPERIDOL [Concomitant]
  3. TOPIRAMATE [Concomitant]
  4. ALPRAZOLAM [Concomitant]
  5. ATENOLOL [Concomitant]
  6. QUETIAPINE FUMARATE [Concomitant]

REACTIONS (1)
  - LEUKOPENIA [None]
